FAERS Safety Report 5662571-7 (Version None)
Quarter: 2008Q1

REPORT INFORMATION
  Report Type: 
  Country: None (occurrence: None)
  Receive Date: 20080310
  Receipt Date: 20080310
  Transmission Date: 20080703
  Serious: Yes (Hospitalization)
  Sender: FDA-Public Use
  Company Number: None

PATIENT
  Age: 44 Year
  Sex: Female
  Weight: 65.318 kg

DRUGS (1)
  1. LEVAQUIN [Suspect]
     Indication: INFECTION
     Dosage: 500MG Q24H IV BOLUS  1 DOSE
     Route: 040
     Dates: start: 20071124, end: 20071125

REACTIONS (8)
  - AGGRESSION [None]
  - AGITATION [None]
  - CRYING [None]
  - HAEMORRHAGE [None]
  - HALLUCINATION, VISUAL [None]
  - PARANOIA [None]
  - SCREAMING [None]
  - TREATMENT NONCOMPLIANCE [None]
